FAERS Safety Report 8330738-5 (Version None)
Quarter: 2012Q2

REPORT INFORMATION
  Report Type: 
  Country: None (occurrence: None)
  Receive Date: 20120502
  Receipt Date: 20120406
  Transmission Date: 20120825
  Serious: No
  Sender: FDA-Public Use
  Company Number: US-AMGEN-USASP2012022082

PATIENT
  Age: 31 Year
  Sex: Female

DRUGS (1)
  1. ENBREL [Suspect]
     Indication: PSORIATIC ARTHROPATHY
     Dosage: 50 MG, QWK
     Dates: start: 20111204

REACTIONS (9)
  - SEASONAL ALLERGY [None]
  - SINUSITIS [None]
  - PAIN [None]
  - INJECTION SITE ERYTHEMA [None]
  - RHINORRHOEA [None]
  - NASAL CONGESTION [None]
  - INJECTION SITE PAIN [None]
  - INJECTION SITE VESICLES [None]
  - INJECTION SITE REACTION [None]
